FAERS Safety Report 20665326 (Version 2)
Quarter: 2022Q2

REPORT INFORMATION
  Report Type: Spontaneous
  Country: TR (occurrence: TR)
  Receive Date: 20220401
  Receipt Date: 20220622
  Transmission Date: 20220721
  Serious: Yes (Other)
  Sender: FDA-Public Use
  Company Number: TR-MLMSERVICE-20220321-3443213-1

PATIENT
  Age: 9 Year
  Sex: Female

DRUGS (3)
  1. DOXORUBICIN [Suspect]
     Active Substance: DOXORUBICIN
     Indication: Acute lymphocytic leukaemia
     Dosage: UNK
     Route: 065
  2. ASPARAGINASE [Suspect]
     Active Substance: ASPARAGINASE
     Indication: Acute lymphocytic leukaemia
     Dosage: UNK
     Route: 065
  3. VINCRISTINE [Suspect]
     Active Substance: VINCRISTINE
     Indication: Acute lymphocytic leukaemia
     Dosage: UNK
     Route: 065

REACTIONS (7)
  - Toxicity to various agents [Unknown]
  - Drug hypersensitivity [Unknown]
  - Palmar-plantar erythrodysaesthesia syndrome [Unknown]
  - Erythema [Unknown]
  - Burning sensation [Unknown]
  - Rash [Unknown]
  - Pruritus [Unknown]
